FAERS Safety Report 17783569 (Version 5)
Quarter: 2020Q3

REPORT INFORMATION
  Report Type: Spontaneous
  Country: US (occurrence: US)
  Receive Date: 20200514
  Receipt Date: 20200807
  Transmission Date: 20201102
  Serious: Yes (Other)
  Sender: FDA-Public Use
  Company Number: US-PFIZER INC-2020192004

PATIENT
  Age: 81 Year
  Sex: Female
  Weight: 78.02 kg

DRUGS (5)
  1. CENTRUM A TO ZINC [Concomitant]
     Active Substance: MINERALS\VITAMINS
     Dosage: UNK [CENTRUM VITAMIN IN THE MORNING TIME]
  2. PREMARIN [Suspect]
     Active Substance: ESTROGENS, CONJUGATED
     Indication: HOT FLUSH
  3. PREMARIN [Suspect]
     Active Substance: ESTROGENS, CONJUGATED
     Indication: FEELING ABNORMAL
  4. VITAMIN D [COLECALCIFEROL] [Concomitant]
     Active Substance: CHOLECALCIFEROL
     Dosage: UNK
  5. PREMARIN [Suspect]
     Active Substance: ESTROGENS, CONJUGATED
     Indication: MENOPAUSE
     Dosage: 0.625 MG
     Route: 048

REACTIONS (7)
  - Insomnia [Unknown]
  - Knee deformity [Unknown]
  - Condition aggravated [Recovered/Resolved]
  - Body height decreased [Unknown]
  - Therapeutic response unexpected [Unknown]
  - Feeling abnormal [Recovered/Resolved]
  - Drug dependence [Unknown]

NARRATIVE: CASE EVENT DATE: 202005
